FAERS Safety Report 10224154 (Version 1)
Quarter: 2014Q2

REPORT INFORMATION
  Report Type: Spontaneous
  Country: SE (occurrence: SE)
  Receive Date: 20140609
  Receipt Date: 20140609
  Transmission Date: 20141212
  Serious: Yes (Hospitalization)
  Sender: FDA-Public Use
  Company Number: PHHY2014SE068057

PATIENT
  Age: 75 Year
  Sex: Female

DRUGS (20)
  1. LETROZOLE SANDOZ [Suspect]
     Indication: BREAST CANCER
     Route: 048
     Dates: start: 20130208, end: 201404
  2. COMBIZYM [Concomitant]
     Dates: end: 20140416
  3. CALCICHEW-D3 [Concomitant]
  4. DUROFERON [Concomitant]
  5. BEHEPAN [Concomitant]
  6. FOLACIN [Concomitant]
  7. EMGESAN [Concomitant]
  8. LOPERAMIDE [Concomitant]
  9. PANODIL [Concomitant]
  10. RINGER-LACTATE SOLUTION ^FRESENIUS^ [Concomitant]
     Dates: start: 20140416
  11. NEUROBION [Concomitant]
     Dates: start: 20140417
  12. INNOHEP [Concomitant]
     Indication: THROMBOSIS PROPHYLAXIS
     Dates: start: 20140503, end: 20140503
  13. NUTRIFLEX LIPID PERI [Concomitant]
     Dates: start: 20140419
  14. GLUCOS FRESENIUS KABI [Concomitant]
     Dates: start: 20140418
  15. PEVISONE [Concomitant]
     Dates: start: 20140423
  16. CEFOTAXIM STRAGEN [Concomitant]
     Dates: start: 20140417
  17. OMEPRAZOL TEVA [Concomitant]
     Dates: start: 20140501
  18. KREON 25000 [Concomitant]
     Dates: start: 20140417
  19. ORALOVITE [Concomitant]
     Dates: start: 20140429
  20. MIRTAZAPIN KRKA [Concomitant]
     Dates: start: 20140425

REACTIONS (3)
  - Thrombocytopenia [Recovered/Resolved]
  - Venous thrombosis limb [Not Recovered/Not Resolved]
  - Leukopenia [Recovered/Resolved]
